FAERS Safety Report 7462120-7 (Version None)
Quarter: 2011Q2

REPORT INFORMATION
  Report Type: 
  Country: None (occurrence: None)
  Receive Date: 20110506
  Receipt Date: 20110419
  Transmission Date: 20111010
  Serious: No
  Sender: FDA-Public Use
  Company Number: US-B.I. PHARMACEUTICALS,INC./RIDGEFIELD-2010-BP-12677BP

PATIENT
  Sex: Female
  Weight: 67.59 kg

DRUGS (10)
  1. FUROSEMIDE [Concomitant]
     Indication: JOINT SWELLING
     Dosage: 20 MG
  2. CALCIUM [Concomitant]
     Indication: PROPHYLAXIS
     Dosage: 1000 MG
  3. ZANTAC 75 [Suspect]
     Indication: ABDOMINAL PAIN
     Dosage: 75 MG
     Route: 048
     Dates: start: 20090930, end: 20091102
  4. DILTIAZEM [Concomitant]
     Indication: HYPERTENSION
     Dosage: 120 MG
  5. MULTI-VITAMINS [Concomitant]
     Indication: PROPHYLAXIS
  6. ATIVAN [Concomitant]
     Dates: start: 20100901
  7. LASIX [Concomitant]
     Dosage: 20 MG
     Dates: start: 20070701
  8. ZANTAC 75 [Suspect]
     Indication: FLATULENCE
     Dates: start: 20100303, end: 20100505
  9. SUCRALFATE [Suspect]
     Indication: GASTRITIS
     Dates: start: 20100101
  10. ASPIRIN [Concomitant]
     Dosage: 81 MG

REACTIONS (5)
  - GASTRITIS [None]
  - WEIGHT DECREASED [None]
  - RENAL CYST [None]
  - HAEMANGIOMA OF LIVER [None]
  - DIARRHOEA [None]
